FAERS Safety Report 9422408 (Version 1)
Quarter: 2013Q3

REPORT INFORMATION
  Report Type: Spontaneous
  Country: US (occurrence: None)
  Receive Date: 20130725
  Receipt Date: 20130725
  Transmission Date: 20140515
  Serious: Yes (Other)
  Sender: FDA-Public Use
  Company Number: None

PATIENT
  Sex: Female

DRUGS (1)
  1. ACTHAR [Suspect]
     Indication: MULTIPLE SCLEROSIS
     Dosage: DAILY FOR 5 DAYS
     Route: 058
     Dates: start: 20130219

REACTIONS (1)
  - Swelling face [None]
